FAERS Safety Report 11271245 (Version 2)
Quarter: 2015Q3

REPORT INFORMATION
  Report Type: Spontaneous
  Country: CN (occurrence: CN)
  Receive Date: 20150714
  Receipt Date: 20150720
  Transmission Date: 20151125
  Serious: Yes (Other)
  Sender: FDA-Public Use
  Company Number: CN-B.I. PHARMACEUTICALS,INC./RIDGEFIELD-2015-BI-37883YA

PATIENT
  Age: 74 Year
  Sex: Female
  Weight: 51 kg

DRUGS (3)
  1. CELECOXIB. [Suspect]
     Active Substance: CELECOXIB
     Indication: INFECTION
     Dosage: 0.2 G
     Route: 048
     Dates: start: 20150126, end: 20150129
  2. HARNAL [Suspect]
     Active Substance: TAMSULOSIN HYDROCHLORIDE
     Indication: POLYURIA
     Dosage: 0.2 MG
     Route: 048
     Dates: start: 20150126, end: 20150129
  3. VESICARE [Suspect]
     Active Substance: SOLIFENACIN SUCCINATE
     Indication: POLYURIA
     Dosage: 5 MG
     Route: 048
     Dates: start: 20150126, end: 20150129

REACTIONS (2)
  - Renal impairment [Not Recovered/Not Resolved]
  - Oedema [Not Recovered/Not Resolved]

NARRATIVE: CASE EVENT DATE: 20150129
